FAERS Safety Report 8010891-3 (Version None)
Quarter: 2011Q4

REPORT INFORMATION
  Report Type: 
  Country: None (occurrence: None)
  Receive Date: 20111228
  Receipt Date: 20111219
  Transmission Date: 20120403
  Serious: Yes (Death)
  Sender: FDA-Public Use
  Company Number: US-PFIZER INC-2011308878

PATIENT
  Age: 35 Year
  Sex: Female

DRUGS (3)
  1. PROPRANOLOL HCL [Suspect]
  2. LAMOTRIGINE [Suspect]
  3. PAROXETINE [Suspect]

REACTIONS (2)
  - RESPIRATORY ARREST [None]
  - CARDIAC ARREST [None]
